FAERS Safety Report 17353407 (Version 1)
Quarter: 2020Q1

REPORT INFORMATION
  Report Type: Spontaneous
  Country: US (occurrence: US)
  Receive Date: 20200131
  Receipt Date: 20200131
  Transmission Date: 20200409
  Serious: No
  Sender: FDA-Public Use
  Company Number: US-JNJFOC-20200123693

PATIENT
  Age: 5 Decade

DRUGS (1)
  1. MENS ROGAINE EXTRA STRENGTH [Suspect]
     Active Substance: MINOXIDIL
     Indication: ALOPECIA
     Dosage: DOSE AND FREQUENCY: HALF CAP AND  TWICE A DAY.?THE PRODUCT WAS LAST ADMINISTERED ON 06/JAN/2020.
     Route: 061
     Dates: start: 20200103

REACTIONS (1)
  - Application site acne [Recovered/Resolved]

NARRATIVE: CASE EVENT DATE: 20200106
